FAERS Safety Report 24715515 (Version 1)
Quarter: 2024Q4

REPORT INFORMATION
  Report Type: Spontaneous
  Country: US (occurrence: US)
  Receive Date: 20241210
  Receipt Date: 20241210
  Transmission Date: 20250114
  Serious: Yes (Hospitalization, Other)
  Sender: DR REDDYS
  Company Number: US-DRL-USA-LIT/USA/24/0017864

PATIENT
  Age: 82 Year
  Sex: Female
  Weight: 70 kg

DRUGS (9)
  1. HEPARIN [Suspect]
     Active Substance: HEPARIN SODIUM
     Indication: Embolism venous
     Dosage: STARTED 18 H AFTER HER LAST DOSE OF APIXABAN(5000 UNITS EVERY 12 H)
     Route: 058
  2. APIXABAN [Suspect]
     Active Substance: APIXABAN
     Indication: Embolism venous
  3. APIXABAN [Suspect]
     Active Substance: APIXABAN
     Dosage: 2 APIXABAN DOSES OF 5 MG AND 1 DOSE OF 2.5 MG OVER A 36-H PERIOD
  4. CHLORTHALIDONE [Concomitant]
     Active Substance: CHLORTHALIDONE
     Indication: Product used for unknown indication
  5. LOSARTAN [Concomitant]
     Active Substance: LOSARTAN
     Indication: Product used for unknown indication
  6. METFORMIN [Concomitant]
     Active Substance: METFORMIN HYDROCHLORIDE
     Indication: Product used for unknown indication
  7. ASPIRIN [Concomitant]
     Active Substance: ASPIRIN
     Indication: Product used for unknown indication
  8. ATORVASTATIN [Concomitant]
     Active Substance: ATORVASTATIN
     Indication: Product used for unknown indication
  9. VENLAFAXINE [Concomitant]
     Active Substance: VENLAFAXINE HYDROCHLORIDE
     Indication: Product used for unknown indication

REACTIONS (2)
  - Drug interaction [Unknown]
  - Drug screen false positive [Unknown]
